FAERS Safety Report 22056964 (Version 2)
Quarter: 2023Q1

REPORT INFORMATION
  Report Type: Spontaneous
  Country: US (occurrence: US)
  Receive Date: 20230303
  Receipt Date: 20230308
  Transmission Date: 20230417
  Serious: No
  Sender: FDA-Public Use
  Company Number: US-Ipsen Biopharmaceuticals, Inc.-2023-04186

PATIENT
  Age: 55 Year
  Sex: Female

DRUGS (2)
  1. DYSPORT [Suspect]
     Active Substance: ABOBOTULINUMTOXINA
     Indication: Skin cosmetic procedure
     Dosage: 40 UNITS IN FOREHEAD, REST IN GLABELLAR, CROWS FEET AND BUNNY LINES
     Route: 065
     Dates: start: 20230124
  2. HYALURONIC ACID [Concomitant]
     Active Substance: HYALURONIC ACID
     Dosage: INJECTABLE GEL WITH LIDOCAINE

REACTIONS (2)
  - Drug ineffective [Unknown]
  - Skin wrinkling [Unknown]
